FAERS Safety Report 24034575 (Version 1)
Quarter: 2024Q3

REPORT INFORMATION
  Report Type: Report from Study
  Country: US (occurrence: US)
  Receive Date: 20240701
  Receipt Date: 20240701
  Transmission Date: 20241016
  Serious: No
  Sender: ROCHE
  Company Number: US-ROCHE-3557544

PATIENT
  Sex: Male
  Weight: 4.0 kg

DRUGS (1)
  1. EVRYSDI [Suspect]
     Active Substance: RISDIPLAM
     Indication: Spinal muscular atrophy
     Route: 048

REACTIONS (3)
  - Diarrhoea [Unknown]
  - Bowel movement irregularity [Unknown]
  - Abdominal discomfort [Unknown]
